FAERS Safety Report 4412920-2 (Version None)
Quarter: 2004Q3

REPORT INFORMATION
  Report Type: 
  Country: None (occurrence: None)
  Receive Date: 20040802
  Receipt Date: 20040722
  Transmission Date: 20050211
  Serious: Yes (Hospitalization)
  Sender: FDA-Public Use
  Company Number: PHNU2004DE02598

PATIENT
  Age: 18 Year
  Sex: Male
  Weight: 100 kg

DRUGS (2)
  1. CLOZARIL [Suspect]
     Dosage: 200 MG/DAY
     Route: 048
     Dates: start: 20020701, end: 20031215
  2. SOLIAN [Suspect]
     Dosage: 300 MG/DAY
     Route: 048
     Dates: start: 20021201, end: 20031215

REACTIONS (28)
  - ABDOMINAL PAIN UPPER [None]
  - ALANINE AMINOTRANSFERASE INCREASED [None]
  - ANAEMIA [None]
  - ASPARTATE AMINOTRANSFERASE INCREASED [None]
  - BLOOD AMYLASE INCREASED [None]
  - BLOOD BILIRUBIN INCREASED [None]
  - BLOOD GLUCOSE INCREASED [None]
  - BLOOD POTASSIUM INCREASED [None]
  - BLOOD PRESSURE INCREASED [None]
  - BLOOD THYROID STIMULATING HORMONE INCREASED [None]
  - C-REACTIVE PROTEIN INCREASED [None]
  - COLD SWEAT [None]
  - DIABETES MELLITUS [None]
  - DRUG INTERACTION [None]
  - FEELING ABNORMAL [None]
  - HAEMATOCRIT DECREASED [None]
  - HAEMOGLOBIN DECREASED [None]
  - HEPATIC ENZYME INCREASED [None]
  - HYPOTHYROIDISM [None]
  - LEUKOCYTOSIS [None]
  - LIPASE INCREASED [None]
  - LIPIDS INCREASED [None]
  - PANCREATITIS [None]
  - TACHYCARDIA [None]
  - TACHYPNOEA [None]
  - THROMBOSIS [None]
  - VOMITING [None]
  - WHOLE BLOOD TRANSFUSION [None]
